FAERS Safety Report 13497095 (Version 1)
Quarter: 2017Q2

REPORT INFORMATION
  Report Type: Spontaneous
  Country: RU (occurrence: RU)
  Receive Date: 20170428
  Receipt Date: 20170428
  Transmission Date: 20170830
  Serious: Yes (Other)
  Sender: FDA-Public Use
  Company Number: PHHY2017RU062546

PATIENT

DRUGS (1)
  1. SECUKINUMAB [Suspect]
     Active Substance: SECUKINUMAB
     Indication: ANKYLOSING SPONDYLITIS
     Dosage: UNK
     Route: 065
     Dates: start: 201611

REACTIONS (6)
  - Sepsis [Unknown]
  - Condition aggravated [Unknown]
  - Amyloidosis [Unknown]
  - Pyrexia [Unknown]
  - Hyperkalaemia [Unknown]
  - Prostatitis [Unknown]
